FAERS Safety Report 6138276-5 (Version None)
Quarter: 2009Q1

REPORT INFORMATION
  Report Type: 
  Country: None (occurrence: None)
  Receive Date: 20090331
  Receipt Date: 20090327
  Transmission Date: 20090719
  Serious: Yes (Hospitalization)
  Sender: FDA-Public Use
  Company Number: B0567640A

PATIENT
  Age: 49 Year
  Sex: Female

DRUGS (7)
  1. NABUCOX [Suspect]
     Indication: ANKYLOSING SPONDYLITIS
     Dosage: 1.5TAB PER DAY
     Route: 048
     Dates: start: 20060101
  2. REMICADE [Suspect]
     Indication: ANKYLOSING SPONDYLITIS
     Route: 042
     Dates: start: 20050201
  3. NEXIUM [Suspect]
     Dosage: 40MG FOUR TIMES PER DAY
     Route: 048
     Dates: start: 20060101
  4. CRESTOR [Concomitant]
     Dosage: 10MG FOUR TIMES PER DAY
     Route: 048
     Dates: start: 20080101, end: 20090201
  5. MALARONE [Concomitant]
     Indication: MALARIA PROPHYLAXIS
     Dates: start: 19990101
  6. CLONAZEPAM [Concomitant]
     Dates: start: 19990101
  7. SKENAN [Concomitant]
     Route: 048
     Dates: start: 19990101

REACTIONS (6)
  - BLOOD AMYLASE INCREASED [None]
  - DERMATITIS [None]
  - ECZEMA [None]
  - PRURIGO [None]
  - PRURITUS GENERALISED [None]
  - SKIN REACTION [None]
